FAERS Safety Report 19503744 (Version 2)
Quarter: 2021Q3

REPORT INFORMATION
  Report Type: Report from Study
  Country: US (occurrence: US)
  Receive Date: 20210707
  Receipt Date: 20210819
  Transmission Date: 20211014
  Serious: No
  Sender: FDA-Public Use
  Company Number: US-MYLANLABS-2021M1039242

PATIENT
  Sex: Male

DRUGS (1)
  1. AMNESTEEM [Suspect]
     Active Substance: ISOTRETINOIN
     Indication: PRODUCT USED FOR UNKNOWN INDICATION
     Dosage: 40 MILLIGRAM
     Dates: start: 20210520, end: 20210720

REACTIONS (3)
  - Decreased appetite [Unknown]
  - Nausea [Unknown]
  - Lip dry [Unknown]

NARRATIVE: CASE EVENT DATE: 2021
